FAERS Safety Report 9272572 (Version 2)
Quarter: 2013Q2

REPORT INFORMATION
  Report Type: Report from Study
  Country: GR (occurrence: GR)
  Receive Date: 20130506
  Receipt Date: 20130514
  Transmission Date: 20140414
  Serious: Yes (Hospitalization)
  Sender: FDA-Public Use
  Company Number: GR-BAXTER-2013BAX016153

PATIENT
  Age: 71 Year
  Sex: Male
  Weight: 91 kg

DRUGS (7)
  1. ENDOXAN 1000 MG - POWDER FOR SOLUTION FOR INJECTION [Suspect]
     Indication: CHRONIC LYMPHOCYTIC LEUKAEMIA
     Route: 042
     Dates: start: 20121113, end: 20130228
  2. RITUXIMAB [Suspect]
     Indication: CHRONIC LYMPHOCYTIC LEUKAEMIA
     Route: 042
     Dates: start: 20121113, end: 20130228
  3. DOXORUBICIN [Suspect]
     Indication: CHRONIC LYMPHOCYTIC LEUKAEMIA
     Route: 042
     Dates: start: 20121113, end: 20130228
  4. VINCRISTINE [Suspect]
     Indication: CHRONIC LYMPHOCYTIC LEUKAEMIA
     Route: 042
     Dates: start: 20121113, end: 20130228
  5. METHYLPREDNISOLONE [Suspect]
     Indication: CHRONIC LYMPHOCYTIC LEUKAEMIA
     Route: 048
     Dates: start: 20121113, end: 20130228
  6. ALLOPURINOL [Concomitant]
     Indication: HYPERURICAEMIA
     Route: 048
     Dates: start: 20121115, end: 20130207
  7. LAMIVUDINE [Concomitant]
     Indication: CHRONIC HEPATITIS B
     Route: 048
     Dates: start: 20130117

REACTIONS (2)
  - Condition aggravated [Unknown]
  - Eosinophilia [Unknown]
